FAERS Safety Report 4560098-7 (Version None)
Quarter: 2005Q1

REPORT INFORMATION
  Report Type: 
  Country: None (occurrence: None)
  Receive Date: 20050120
  Receipt Date: 20050120
  Transmission Date: 20050727
  Serious: Yes (Death)
  Sender: FDA-Public Use
  Company Number: None

PATIENT
  Age: 75 Year
  Sex: Male

DRUGS (1)
  1. GLEEVEC [Suspect]
     Indication: MYELOFIBROSIS
     Dosage: 600 MG D Q /ORAL
     Route: 048
     Dates: start: 20040920, end: 20041129

REACTIONS (1)
  - DEATH [None]
